FAERS Safety Report 9008651 (Version 2)
Quarter: 2013Q1

REPORT INFORMATION
  Report Type: Report from Study
  Country: US (occurrence: US)
  Receive Date: 20130111
  Receipt Date: 20130212
  Transmission Date: 20140127
  Serious: No
  Sender: FDA-Public Use
  Company Number: US-009507513-1301USA004324

PATIENT
  Age: 66 Year
  Sex: Female

DRUGS (4)
  1. BOCEPREVIR [Suspect]
     Indication: CHRONIC HEPATITIS C
     Dosage: UNK
     Route: 048
     Dates: start: 20121231
  2. RIBAPAK [Suspect]
     Indication: CHRONIC HEPATITIS C
     Dosage: 1200 MG, QD
     Route: 048
     Dates: start: 20121119
  3. RIBAPAK [Suspect]
     Dosage: 600 MG, QD
     Route: 048
  4. PEGASYS [Suspect]
     Indication: CHRONIC HEPATITIS C
     Dosage: 180 MICROGRAM, QW
     Route: 058
     Dates: start: 20121119

REACTIONS (4)
  - Rash pruritic [Unknown]
  - Haemoglobin decreased [Unknown]
  - Chills [Unknown]
  - Insomnia [Unknown]
